FAERS Safety Report 15769434 (Version 1)
Quarter: 2018Q4

REPORT INFORMATION
  Report Type: Spontaneous
  Country: SA (occurrence: SA)
  Receive Date: 20181228
  Receipt Date: 20181228
  Transmission Date: 20190205
  Serious: Yes (Other)
  Sender: FDA-Public Use
  Company Number: SA-ASTRAZENECA-2018SF70268

PATIENT
  Age: 58 Year
  Sex: Female

DRUGS (3)
  1. CONCUR PLUS [Concomitant]
  2. LYNPARZA [Suspect]
     Active Substance: OLAPARIB
     Indication: OVARIAN CANCER
     Route: 048
     Dates: start: 20170401, end: 20180315
  3. GLUCOPHAGE [Concomitant]
     Active Substance: METFORMIN HYDROCHLORIDE

REACTIONS (3)
  - Malignant neoplasm progression [Not Recovered/Not Resolved]
  - Therapy cessation [Unknown]
  - Ovarian cancer recurrent [Unknown]

NARRATIVE: CASE EVENT DATE: 20180601
